FAERS Safety Report 10746158 (Version 4)
Quarter: 2015Q1

REPORT INFORMATION
  Report Type: Spontaneous
  Country: JP (occurrence: JP)
  Receive Date: 20150128
  Receipt Date: 20150319
  Transmission Date: 20150721
  Serious: Yes (Death, Hospitalization)
  Sender: FDA-Public Use
  Company Number: JP-PFIZER INC-2015030484

PATIENT
  Age: 65 Year
  Sex: Female
  Weight: 51 kg

DRUGS (2)
  1. SUTENT [Suspect]
     Active Substance: SUNITINIB MALATE
     Indication: METASTATIC RENAL CELL CARCINOMA
     Dosage: 37.5 MG, 1X/DAY
     Route: 048
     Dates: start: 20130926, end: 20141010
  2. AMLODIPINE [Concomitant]
     Active Substance: AMLODIPINE BESYLATE
     Dosage: 25 MG, 1X/DAY
     Route: 048
     Dates: start: 20110407

REACTIONS (6)
  - Metastatic renal cell carcinoma [Fatal]
  - Pleural effusion [Not Recovered/Not Resolved]
  - Feeling abnormal [Recovering/Resolving]
  - Feeling abnormal [Recovering/Resolving]
  - Interstitial lung disease [Fatal]
  - Disease progression [Fatal]

NARRATIVE: CASE EVENT DATE: 20141010
